FAERS Safety Report 4825177-5 (Version None)
Quarter: 2005Q4

REPORT INFORMATION
  Report Type: 
  Country: None (occurrence: None)
  Receive Date: 20051109
  Receipt Date: 20051103
  Transmission Date: 20060501
  Serious: Yes (Other)
  Sender: FDA-Public Use
  Company Number: 200513733GDS

PATIENT
  Age: 4 Year
  Sex: Female

DRUGS (2)
  1. CIPROFLOXACIN [Suspect]
     Indication: PULMONARY TUBERCULOSIS
     Dosage: ORAL
     Route: 048
  2. CLARITHROMYCIN [Suspect]
     Indication: PULMONARY TUBERCULOSIS

REACTIONS (2)
  - FATIGUE [None]
  - TOOTH DISCOLOURATION [None]
